FAERS Safety Report 8314389-4 (Version None)
Quarter: 2012Q2

REPORT INFORMATION
  Report Type: 
  Country: None (occurrence: None)
  Receive Date: 20120426
  Receipt Date: 20120424
  Transmission Date: 20120825
  Serious: Yes (Hospitalization)
  Sender: FDA-Public Use
  Company Number: IE-ROCHE-1054193

PATIENT
  Sex: Female

DRUGS (4)
  1. ROCEPHIN [Suspect]
     Indication: ARTHRITIS INFECTIVE
     Dosage: 1 UNIT
     Route: 042
     Dates: start: 20120315
  2. ROCEPHIN [Suspect]
     Dosage: 9 UNITS
     Dates: start: 20120322
  3. ROCEPHIN [Suspect]
     Dosage: 6 UNITS
     Dates: start: 20120320
  4. ROCEPHIN [Suspect]
     Dosage: 7 UNITS
     Dates: start: 20120403

REACTIONS (5)
  - ASTHENIA [None]
  - FATIGUE [None]
  - ARTHRALGIA [None]
  - PALPITATIONS [None]
  - HEART RATE IRREGULAR [None]
